FAERS Safety Report 10770468 (Version 1)
Quarter: 2015Q1

REPORT INFORMATION
  Report Type: Spontaneous
  Country: GB (occurrence: GB)
  Receive Date: 20150206
  Receipt Date: 20150206
  Transmission Date: 20150721
  Serious: Yes (Other)
  Sender: FDA-Public Use
  Company Number: GB-ASTRAZENECA-2015SE09502

PATIENT
  Age: 53 Year
  Sex: Female
  Weight: 52.2 kg

DRUGS (1)
  1. ROSUVASTATIN [Suspect]
     Active Substance: ROSUVASTATIN
     Indication: CARDIAC DISORDER
     Route: 048
     Dates: start: 20140317

REACTIONS (7)
  - Amnesia [Not Recovered/Not Resolved]
  - Protein urine present [Not Recovered/Not Resolved]
  - Swelling face [Not Recovered/Not Resolved]
  - Abdominal pain [Recovering/Resolving]
  - Blood urine present [Not Recovered/Not Resolved]
  - Aphasia [Not Recovered/Not Resolved]
  - Myalgia [Recovered/Resolved with Sequelae]

NARRATIVE: CASE EVENT DATE: 20140317
